FAERS Safety Report 7520324-9 (Version None)
Quarter: 2011Q2

REPORT INFORMATION
  Report Type: 
  Country: None (occurrence: None)
  Receive Date: 20110602
  Receipt Date: 20110527
  Transmission Date: 20111010
  Serious: Yes (Death, Hospitalization, Other)
  Sender: FDA-Public Use
  Company Number: US-AMGEN-QUU440876

PATIENT
  Age: 53 Year
  Sex: Female
  Weight: 70 kg

DRUGS (23)
  1. CALCIUM WITH VITAMIN D3 [Concomitant]
     Dosage: UNK
     Route: 048
  2. NPLATE [Suspect]
     Indication: THROMBOCYTOPENIA
  3. PREDNISONE [Concomitant]
  4. ZOFRAN [Concomitant]
     Dosage: 4 MG, PRN
     Route: 048
  5. PROPRANOLOL [Concomitant]
     Dosage: 10 MG, BID
     Route: 048
  6. ETOPOSIDE [Concomitant]
     Dosage: 73 MG, UNK
     Dates: start: 20100924, end: 20100928
  7. NEULASTA [Suspect]
     Indication: CHEMOTHERAPY
     Dosage: 6 MG, UNK
     Route: 058
     Dates: start: 20100901
  8. CORTICOSTEROID NOS [Concomitant]
     Dosage: UNK UNK, UNK
     Dates: start: 20100218
  9. HALCION [Concomitant]
     Dosage: 0.25 MG, PRN
     Route: 048
  10. VITAMIN B COMPLEX                  /00003501/ [Concomitant]
     Route: 048
  11. CYCLOPHOSPHAMIDE [Concomitant]
     Dosage: UNK UNK, UNK
     Dates: start: 20100218, end: 20100519
  12. METHYLPREDNISOLONE [Concomitant]
     Dosage: 500 MG, UNK
     Dates: start: 20100924, end: 20100928
  13. CYTARABINE [Concomitant]
     Dosage: 3660 MG, UNK
     Dates: start: 20100924, end: 20100928
  14. CISPLATIN [Concomitant]
     Dosage: 46 MG, UNK
  15. OXYCODONE HCL [Concomitant]
     Dosage: 5 MG, PRN
     Route: 048
  16. RITUXIMAB [Concomitant]
     Dosage: 700 MG, UNK
     Dates: start: 20100222
  17. NPLATE [Suspect]
     Indication: IDIOPATHIC THROMBOCYTOPENIC PURPURA
     Dosage: 150 UNK, QWK
     Route: 058
     Dates: start: 20100505
  18. DOXORUBICIN HCL [Concomitant]
     Dosage: UNK
     Dates: end: 20100519
  19. VINCRISTINE [Concomitant]
     Dosage: UNK
     Dates: end: 20100519
  20. PROCHLORPERAZINE MALEATE [Concomitant]
     Dosage: 10 MG, PRN
     Route: 048
  21. NEURONTIN [Concomitant]
     Dosage: 100 MG, TID
     Route: 048
  22. MULTIVITAMIN                       /00097801/ [Concomitant]
  23. NEXIUM [Concomitant]
     Dosage: 40 MG, QD
     Route: 048

REACTIONS (23)
  - PLATELET COUNT DECREASED [None]
  - NIGHT SWEATS [None]
  - VARICES OESOPHAGEAL [None]
  - NAUSEA [None]
  - PNEUMONIA KLEBSIELLA [None]
  - PORTAL VEIN THROMBOSIS [None]
  - SPIDER NAEVUS [None]
  - LYMPHOMA [None]
  - HEPATIC NEOPLASM MALIGNANT [None]
  - HYPERGLYCAEMIA [None]
  - PULMONARY TOXICITY [None]
  - ENTEROCOCCAL INFECTION [None]
  - OBSTRUCTION GASTRIC [None]
  - VISION BLURRED [None]
  - SEASONAL ALLERGY [None]
  - PULMONARY EMBOLISM [None]
  - HYPOAESTHESIA [None]
  - CANDIDIASIS [None]
  - HAEMATURIA [None]
  - KLEBSIELLA SEPSIS [None]
  - ABSCESS FUNGAL [None]
  - MENTAL STATUS CHANGES [None]
  - PARAESTHESIA [None]
